FAERS Safety Report 6554073-0 (Version None)
Quarter: 2010Q1

REPORT INFORMATION
  Report Type: 
  Country: None (occurrence: None)
  Receive Date: 20100125
  Receipt Date: 20100125
  Transmission Date: 20100710
  Serious: Yes (Hospitalization)
  Sender: FDA-Public Use
  Company Number: None

PATIENT
  Age: 59 Year
  Sex: Male

DRUGS (2)
  1. DIVALPROEX SODIUM [Suspect]
     Indication: CONVULSION
     Dosage: 500 MG BID PO
     Route: 048
     Dates: start: 20070412, end: 20091028
  2. TOPIRAMATE [Suspect]
     Indication: MIGRAINE
     Dosage: 100 MG BID PO
     Route: 048
     Dates: start: 20081114, end: 20091028

REACTIONS (11)
  - ANTICONVULSANT DRUG LEVEL BELOW THERAPEUTIC [None]
  - CONVULSION [None]
  - DRUG WITHDRAWAL CONVULSIONS [None]
  - ENCEPHALOPATHY [None]
  - HYPERAMMONAEMIA [None]
  - HYPOXIA [None]
  - OVERDOSE [None]
  - SEDATION [None]
  - SLEEP APNOEA SYNDROME [None]
  - TREATMENT NONCOMPLIANCE [None]
  - UNRESPONSIVE TO STIMULI [None]
